FAERS Safety Report 9895252 (Version 1)
Quarter: 2014Q1

REPORT INFORMATION
  Report Type: Spontaneous
  Country: US (occurrence: US)
  Receive Date: 20140213
  Receipt Date: 20140213
  Transmission Date: 20141002
  Serious: No
  Sender: FDA-Public Use
  Company Number: US-BRISTOL-MYERS SQUIBB COMPANY-17270943

PATIENT
  Age: 77 Year
  Sex: Female
  Weight: 110.65 kg

DRUGS (1)
  1. ORENCIA FOR INJ [Suspect]
     Indication: RHEUMATOID ARTHRITIS
     Dosage: INFUSION?LAST DOSE: 13DEC2012
     Route: 042

REACTIONS (2)
  - Drug ineffective [Unknown]
  - Cough [Not Recovered/Not Resolved]
